FAERS Safety Report 11989494 (Version 1)
Quarter: 2016Q1

REPORT INFORMATION
  Report Type: Other
  Country: TR (occurrence: TR)
  Receive Date: 20160202
  Receipt Date: 20160202
  Transmission Date: 20160526
  Serious: Yes (Hospitalization)
  Sender: FDA-Public Use
  Company Number: TR-ACTELION-A-CH2016-130706

PATIENT
  Age: 4 Month
  Sex: Male

DRUGS (2)
  1. TRACLEER [Suspect]
     Active Substance: BOSENTAN
     Indication: PULMONARY HYPERTENSIVE CRISIS
     Dosage: UNK
     Route: 048
  2. VENTAVIS [Suspect]
     Active Substance: ILOPROST
     Indication: PULMONARY HYPERTENSIVE CRISIS
     Route: 042

REACTIONS (4)
  - Bradycardia [Unknown]
  - Hypotension [Unknown]
  - Oliguria [Unknown]
  - Aorticopulmonary window repair [Unknown]
